FAERS Safety Report 24742367 (Version 1)
Quarter: 2024Q4

REPORT INFORMATION
  Report Type: Spontaneous
  Country: US (occurrence: None)
  Receive Date: 20241216
  Receipt Date: 20241216
  Transmission Date: 20250115
  Serious: No
  Sender: Public
  Company Number: None

PATIENT
  Age: 68 Year
  Sex: Male
  Weight: 88.0 kg

DRUGS (1)
  1. HUMIRA [Suspect]
     Active Substance: ADALIMUMAB
     Indication: Iridocyclitis
     Dosage: OTHER FREQUENCY : EVERY2WEEKSINTHEABDOMENORTHIGHROTATINGINJECTION ;?
     Dates: start: 202308

REACTIONS (1)
  - Illness [None]
